FAERS Safety Report 5084726-5 (Version None)
Quarter: 2006Q3

REPORT INFORMATION
  Report Type: 
  Country: None (occurrence: None)
  Receive Date: 20060815
  Receipt Date: 20060803
  Transmission Date: 20061208
  Serious: Yes (Life-Threatening, Hospitalization)
  Sender: FDA-Public Use
  Company Number: GXKR2006GB04618

PATIENT
  Age: 64 Year
  Sex: Female

DRUGS (6)
  1. DIGOXIN [Suspect]
     Indication: ATRIAL FIBRILLATION
  2. SOTALOL HCL [Suspect]
     Indication: ATRIAL FIBRILLATION
  3. VERAPAMIL [Suspect]
     Indication: ATRIAL FIBRILLATION
     Dosage: 80 MG, TID
  4. WARFARIN SODIUM [Concomitant]
  5. CO-AMILOFRUSE (AMILORIDE HYDROCHLORIDE, FUROSEMIDE) [Concomitant]
  6. PERINDOPRIL ERBUMINE [Concomitant]

REACTIONS (11)
  - ANURIA [None]
  - ATRIAL FIBRILLATION [None]
  - BRADYCARDIA [None]
  - CARDIAC FAILURE [None]
  - CARDIOACTIVE DRUG LEVEL BELOW THERAPEUTIC [None]
  - DRUG INTERACTION [None]
  - GLASGOW COMA SCALE ABNORMAL [None]
  - HYPOTENSION [None]
  - IATROGENIC INJURY [None]
  - METABOLIC ACIDOSIS [None]
  - RENAL IMPAIRMENT [None]
